FAERS Safety Report 5647114-6 (Version None)
Quarter: 2008Q1

REPORT INFORMATION
  Report Type: 
  Country: None (occurrence: None)
  Receive Date: 20080131
  Receipt Date: 20071204
  Transmission Date: 20080703
  Serious: No
  Sender: FDA-Public Use
  Company Number: 163-21880-07120254

PATIENT
  Age: 71 Year
  Sex: Male

DRUGS (3)
  1. REVLIMID [Suspect]
     Indication: MULTIPLE MYELOMA
     Dosage: 25 MG, DAILY X 21 DAYS, ORAL
     Route: 048
     Dates: start: 20071103
  2. DEXAMETHASONE TAB [Concomitant]
  3. ASPIRIN [Concomitant]

REACTIONS (5)
  - GAIT DISTURBANCE [None]
  - HICCUPS [None]
  - HYPOAESTHESIA [None]
  - PAIN IN EXTREMITY [None]
  - PARAESTHESIA [None]
